FAERS Safety Report 22616985 (Version 1)
Quarter: 2023Q2

REPORT INFORMATION
  Report Type: Spontaneous
  Country: CA (occurrence: CA)
  Receive Date: 20230620
  Receipt Date: 20230620
  Transmission Date: 20230721
  Serious: Yes (Other)
  Sender: FDA-Public Use
  Company Number: CA-Vifor (International) Inc.-VIT-2023-04316

PATIENT
  Age: 48 Year
  Sex: Female

DRUGS (1)
  1. TAVNEOS [Suspect]
     Active Substance: AVACOPAN
     Indication: Product used for unknown indication
     Dosage: 10 MILLIGRAM, UNK
     Route: 048
     Dates: start: 202303

REACTIONS (5)
  - Contusion [Unknown]
  - Joint swelling [Unknown]
  - Peripheral swelling [Unknown]
  - Muscle spasms [Unknown]
  - Headache [Recovering/Resolving]

NARRATIVE: CASE EVENT DATE: 20230609
